FAERS Safety Report 24202498 (Version 1)
Quarter: 2024Q3

REPORT INFORMATION
  Report Type: Other
  Country: ES (occurrence: ES)
  Receive Date: 20240813
  Receipt Date: 20240813
  Transmission Date: 20241017
  Serious: Yes (Other)
  Sender: TOLMAR
  Company Number: ES-SANDOZ-SDZ2024ES069328

PATIENT
  Age: 60 Year
  Sex: Male

DRUGS (11)
  1. ELIGARD [Suspect]
     Active Substance: LEUPROLIDE ACETATE
     Indication: Hormone-dependent prostate cancer
     Dosage: UNK, Q 6 MONTH (USED BIANNUAL)
  2. ELIGARD [Suspect]
     Active Substance: LEUPROLIDE ACETATE
     Indication: Hormone-dependent prostate cancer
     Dosage: UNK
  3. ABIRATERONE ACETATE [Suspect]
     Active Substance: ABIRATERONE ACETATE
     Indication: Hormone-dependent prostate cancer
     Dosage: 1000 MG, QD
     Dates: start: 202109
  4. ABIRATERONE ACETATE [Suspect]
     Active Substance: ABIRATERONE ACETATE
     Indication: Hormone-refractory prostate cancer
  5. BICALUTAMIDE [Suspect]
     Active Substance: BICALUTAMIDE
     Indication: Hormone-dependent prostate cancer
     Dosage: FOR 1 MONTH
  6. PREDNISONE [Suspect]
     Active Substance: PREDNISONE
     Indication: Product used for unknown indication
     Dosage: 10 MILLIGRAM, QD FOR SIX CYCLES EVERY 3 WEEKS (LAST DOSE IN JANUARY 2020)
     Dates: start: 202109
  7. ENZALUTAMIDE [Suspect]
     Active Substance: ENZALUTAMIDE
     Indication: Hormone-dependent prostate cancer
     Dosage: 160 MILLIGRAM, Q24H (QD)
  8. ENZALUTAMIDE [Suspect]
     Active Substance: ENZALUTAMIDE
     Indication: Hormone-refractory prostate cancer
  9. LORMETAZEPAM [Concomitant]
     Active Substance: LORMETAZEPAM
     Indication: Insomnia
     Dosage: 1 MG, QD (AT NIGHT)
     Dates: start: 201906
  10. DOCETAXEL [Concomitant]
     Active Substance: DOCETAXEL\DOCETAXEL ANHYDROUS
     Indication: Product used for unknown indication
     Dosage: 75 MILLIGRAM PER SQUARE METRE, FOR SIX CYCLES EVERY 3 WEEKS (LAST DOSE IN JANUARY 2020)
  11. DOCETAXEL [Concomitant]
     Active Substance: DOCETAXEL\DOCETAXEL ANHYDROUS
     Dosage: 75 MILLIGRAM PER SQUARE METRE, FOR SIX CYCLES EVERY 3 WEEKS (LAST DOSE IN JANUARY 2020)
     Dates: start: 202001

REACTIONS (1)
  - Neutropenia [Recovered/Resolved]
